FAERS Safety Report 9882612 (Version 3)
Quarter: 2014Q1

REPORT INFORMATION
  Report Type: Spontaneous
  Country: US (occurrence: US)
  Receive Date: 20140207
  Receipt Date: 20140219
  Transmission Date: 20141002
  Serious: Yes (Death, Other)
  Sender: FDA-Public Use
  Company Number: US-009507513-1402USA003296

PATIENT
  Sex: 0

DRUGS (3)
  1. INTEGRILIN [Suspect]
     Indication: THROMBOSIS
     Dosage: 1 MICROGRAM/KG/MIN
  2. ASPIRIN [Concomitant]
     Route: 048
  3. HEPARIN [Concomitant]
     Route: 042

REACTIONS (1)
  - Cerebral haemorrhage [Fatal]
